FAERS Safety Report 20533042 (Version 1)
Quarter: 2022Q1

REPORT INFORMATION
  Report Type: Spontaneous
  Country: CN (occurrence: None)
  Receive Date: 20220301
  Receipt Date: 20220301
  Transmission Date: 20220423
  Serious: Yes (Other)
  Sender: FDA-Public Use
  Company Number: 2022A078385

PATIENT
  Age: 69 Year
  Sex: Female
  Weight: 60 kg

DRUGS (5)
  1. IMFINZI [Suspect]
     Active Substance: DURVALUMAB
     Indication: Small cell lung cancer extensive stage
     Dosage: 1000MG/CYCLE
     Route: 042
  2. ETOPOSIDE [Concomitant]
     Active Substance: ETOPOSIDE
     Indication: Small cell lung cancer extensive stage
  3. CARBOPLATIN [Concomitant]
     Active Substance: CARBOPLATIN
     Indication: Small cell lung cancer extensive stage
  4. TUOBO [Concomitant]
  5. CISPLATIN [Concomitant]
     Active Substance: CISPLATIN

REACTIONS (3)
  - White blood cell count decreased [Recovering/Resolving]
  - Platelet count decreased [Recovering/Resolving]
  - Bone marrow failure [Unknown]
